FAERS Safety Report 8011625-9 (Version None)
Quarter: 2011Q4

REPORT INFORMATION
  Report Type: 
  Country: None (occurrence: None)
  Receive Date: 20111228
  Receipt Date: 20111219
  Transmission Date: 20120403
  Serious: Yes (Hospitalization)
  Sender: FDA-Public Use
  Company Number: US-BAYER-2011-038951

PATIENT
  Age: 34 Year
  Sex: Female
  Weight: 112.93 kg

DRUGS (7)
  1. YAZ [Suspect]
     Indication: PREMENSTRUAL SYNDROME
  2. LEVAQUIN [Concomitant]
     Dosage: 750 MG, QD
     Route: 048
     Dates: start: 20090313
  3. YAZ [Suspect]
     Indication: HEADACHE
  4. PROAIR HFA [Concomitant]
     Indication: RESPIRATORY TRACT CONGESTION
     Dosage: UNK UNK, PRN
     Dates: start: 20090313
  5. PEPCID [Concomitant]
  6. EFFEXOR [Concomitant]
     Indication: ANXIETY
     Dosage: UNK UNK, QD
     Route: 048
     Dates: start: 20070101
  7. YAZ [Suspect]
     Indication: CONTRACEPTION
     Dosage: UNK
     Dates: start: 20080317, end: 20090417

REACTIONS (3)
  - PULMONARY EMBOLISM [None]
  - PAIN [None]
  - INJURY [None]
